FAERS Safety Report 14527295 (Version 4)
Quarter: 2018Q1

REPORT INFORMATION
  Report Type: Spontaneous
  Country: GB (occurrence: GB)
  Receive Date: 20180213
  Receipt Date: 20180309
  Transmission Date: 20180509
  Serious: Yes (Hospitalization, Other)
  Sender: FDA-Public Use
  Company Number: PHHY2018GB018268

PATIENT
  Age: 78 Year
  Sex: Female

DRUGS (1)
  1. CICLOSPORIN [Suspect]
     Active Substance: CYCLOSPORINE
     Indication: BONE MARROW TRANSPLANT
     Dosage: 125 MG, BID
     Route: 065
     Dates: start: 201601, end: 201606

REACTIONS (4)
  - Diabetes mellitus [Unknown]
  - Neutropenic sepsis [Not Recovered/Not Resolved]
  - Therapy non-responder [Unknown]
  - Thrombocytopenia [Unknown]

NARRATIVE: CASE EVENT DATE: 201604
